FAERS Safety Report 4743563-9 (Version None)
Quarter: 2005Q3

REPORT INFORMATION
  Report Type: 
  Country: None (occurrence: None)
  Receive Date: 20050809
  Receipt Date: 20050727
  Transmission Date: 20060218
  Serious: Yes (Other)
  Sender: FDA-Public Use
  Company Number: 2005102259

PATIENT
  Age: 10 Year
  Sex: Female

DRUGS (6)
  1. ZYVOX [Suspect]
     Indication: PNEUMONIA STAPHYLOCOCCAL
     Dosage: 600 MG (600 MG), INTRAVENOUS
     Route: 042
     Dates: start: 20050630, end: 20050703
  2. TAZOCIN (PIPERACILLIN SODIUM, TAZOBACTAM SODIUM) [Concomitant]
  3. CARBAMAZEPINE [Concomitant]
  4. LANSOPRAZOLE [Concomitant]
  5. LAMICTAL [Concomitant]
  6. CLOBAZAM (CLOBAZAM) [Concomitant]

REACTIONS (2)
  - ELECTROCARDIOGRAM ABNORMAL [None]
  - HYPOKALAEMIA [None]
